FAERS Safety Report 18710587 (Version 2)
Quarter: 2022Q1

REPORT INFORMATION
  Report Type: Report from Study
  Country: US (occurrence: None)
  Receive Date: 20210107
  Receipt Date: 20220217
  Transmission Date: 20220424
  Serious: Yes (Hospitalization, Other)
  Sender: FDA-Public Use
  Company Number: US-ROCHE-2744321

PATIENT
  Age: 78 Year
  Sex: Male
  Weight: 86.1 kg

DRUGS (5)
  1. ATEZOLIZUMAB [Suspect]
     Active Substance: ATEZOLIZUMAB
     Indication: Bladder transitional cell carcinoma
     Dosage: OVER 60 MINUTES ON DAY 1.?LAST ADMINISTERED ON 03/AUG/2020.
     Route: 041
     Dates: start: 20190116
  2. ERIBULIN MESYLATE [Suspect]
     Active Substance: ERIBULIN MESYLATE
     Indication: Bladder transitional cell carcinoma
     Dosage: OVER 2-3 MINUTES ON DAYS 1 AND 8?LAST ADMINISTERED ON 10/AUG/2020.
     Route: 042
     Dates: start: 20190116
  3. ATENOLOL [Suspect]
     Active Substance: ATENOLOL
     Indication: Product used for unknown indication
     Route: 065
  4. RAMIPRIL [Suspect]
     Active Substance: RAMIPRIL
     Indication: Product used for unknown indication
     Route: 065
  5. TAMSULOSIN [Suspect]
     Active Substance: TAMSULOSIN
     Indication: Product used for unknown indication
     Route: 065

REACTIONS (9)
  - Hyponatraemia [Recovered/Resolved]
  - Polymyalgia rheumatica [Recovering/Resolving]
  - Arthralgia [Recovering/Resolving]
  - Polyneuropathy [Unknown]
  - Syncope [Recovered/Resolved]
  - Rash maculo-papular [Unknown]
  - Neutrophil count decreased [Unknown]
  - Myalgia [Unknown]
  - Pelvic pain [Unknown]

NARRATIVE: CASE EVENT DATE: 20190116
